FAERS Safety Report 24379399 (Version 1)
Quarter: 2024Q3

REPORT INFORMATION
  Report Type: Spontaneous
  Country: DE (occurrence: DE)
  Receive Date: 20240930
  Receipt Date: 20240930
  Transmission Date: 20241017
  Serious: Yes (Other)
  Sender: NOVARTIS
  Company Number: None

PATIENT
  Age: 62 Year
  Sex: Female
  Weight: 55 kg

DRUGS (1)
  1. INCLISIRAN [Suspect]
     Active Substance: INCLISIRAN
     Indication: Hypercholesterolaemia
     Dosage: 284 MG, QD, DAILY DOSE: 284 MG EVERY 00:00:01
     Route: 058

REACTIONS (4)
  - Chest discomfort [Recovered/Resolved]
  - Panic attack [Recovered/Resolved]
  - Restlessness [Recovered/Resolved]
  - Thanatophobia [Recovered/Resolved]

NARRATIVE: CASE EVENT DATE: 20230101
